FAERS Safety Report 6607997-X (Version None)
Quarter: 2010Q1

REPORT INFORMATION
  Report Type: 
  Country: None (occurrence: None)
  Receive Date: 20100301
  Receipt Date: 20100214
  Transmission Date: 20100710
  Serious: Yes (Hospitalization)
  Sender: FDA-Public Use
  Company Number: NZ-AMGEN-QUU395436

PATIENT
  Sex: Female

DRUGS (5)
  1. NEUPOGEN [Suspect]
     Indication: AGRANULOCYTOSIS
     Route: 042
     Dates: start: 20000710
  2. GENTAMICIN [Concomitant]
  3. PIPERACILLIN [Concomitant]
     Dates: start: 20000712, end: 20000716
  4. COTRIM [Concomitant]
     Dates: start: 20000101
  5. FLUCONAZOLE [Concomitant]
     Dates: start: 20000101

REACTIONS (3)
  - PETECHIAE [None]
  - PRURITUS [None]
  - RASH [None]
